FAERS Safety Report 24424251 (Version 6)
Quarter: 2024Q4

REPORT INFORMATION
  Report Type: Spontaneous
  Country: FR (occurrence: FR)
  Receive Date: 20241010
  Receipt Date: 20241212
  Transmission Date: 20250115
  Serious: Yes (Death)
  Sender: ORGANON
  Company Number: None

PATIENT
  Age: 96 Year
  Sex: Female
  Weight: 54 kg

DRUGS (10)
  1. EBASTINE [Suspect]
     Active Substance: EBASTINE
     Indication: Product used for unknown indication
     Dosage: 5 MILLIGRAM, QD (FILM-COATED TABLET)
     Route: 048
     Dates: start: 20231123
  2. RISPERDAL [Suspect]
     Active Substance: RISPERIDONE
     Indication: Mental disorder
     Dosage: 1.5 MILLIGRAM, QD
     Route: 048
     Dates: start: 20240127
  3. DALBAVANCIN HYDROCHLORIDE [Suspect]
     Active Substance: DALBAVANCIN HYDROCHLORIDE
     Indication: Device related infection
     Dosage: 1500 MILLIGRAM, ONCE TOTAL (POWDER FOR SOLUTION FOR DILUTION FOR INFUSION)
     Route: 042
     Dates: start: 20240131, end: 20240131
  4. DALBAVANCIN HYDROCHLORIDE [Suspect]
     Active Substance: DALBAVANCIN HYDROCHLORIDE
     Indication: Arthritis infective
     Dosage: 1500 MILLIGRAM, ONCE TOTAL (POWDER FOR SOLUTION FOR DILUTION FOR INFUSION)
     Route: 042
     Dates: start: 20240306, end: 20240306
  5. DALBAVANCIN HYDROCHLORIDE [Suspect]
     Active Substance: DALBAVANCIN HYDROCHLORIDE
     Indication: Product used for unknown indication
  6. ESCITALOPRAM OXALATE [Suspect]
     Active Substance: ESCITALOPRAM OXALATE
     Indication: Mental disorder
     Dosage: 10 MILLIGRAM, QD (SCORED FILM-COATED TABLET)
     Route: 048
     Dates: start: 20240127
  7. RIFAMPIN [Suspect]
     Active Substance: RIFAMPIN
     Indication: Device related infection
     Dosage: 3000 MG
     Route: 048
     Dates: start: 20240127
  8. RIFAMPIN [Suspect]
     Active Substance: RIFAMPIN
     Indication: Arthritis infective
  9. NEBIVOLOL [Suspect]
     Active Substance: NEBIVOLOL
     Indication: Hypertension
     Dosage: 2.5 MILLIGRAM, QD
     Route: 048
     Dates: start: 20231121
  10. RISPERIDONE [Suspect]
     Active Substance: RISPERIDONE
     Indication: Mental disorder
     Dosage: 1.5 MILLIGRAM, QD
     Route: 048
     Dates: start: 20240127

REACTIONS (3)
  - Sudden death [Fatal]
  - Cardiac arrest [Fatal]
  - Product use in unapproved indication [Fatal]

NARRATIVE: CASE EVENT DATE: 20240319
